FAERS Safety Report 9279857 (Version 2)
Quarter: 2013Q2

REPORT INFORMATION
  Report Type: Spontaneous
  Country: US (occurrence: US)
  Receive Date: 20130509
  Receipt Date: 20130607
  Transmission Date: 20140414
  Serious: No
  Sender: FDA-Public Use
  Company Number: US-BIOGENIDEC-2013BI040370

PATIENT
  Age: 57 Year
  Sex: Female

DRUGS (4)
  1. AVONEX [Suspect]
     Indication: MULTIPLE SCLEROSIS
     Route: 030
     Dates: start: 20130401, end: 201305
  2. AVONEX [Suspect]
     Indication: MULTIPLE SCLEROSIS
     Route: 030
     Dates: start: 201305
  3. INSULIN (NOS) [Concomitant]
     Indication: DIABETES MELLITUS
     Route: 058
  4. MIGRAINE MEDICATION (NOS) [Concomitant]
     Indication: MIGRAINE

REACTIONS (1)
  - Tremor [Recovered/Resolved]
